FAERS Safety Report 8031774-9 (Version None)
Quarter: 2012Q1

REPORT INFORMATION
  Report Type: 
  Country: None (occurrence: None)
  Receive Date: 20120109
  Receipt Date: 20120105
  Transmission Date: 20120608
  Serious: Yes (Life-Threatening, Hospitalization, Other)
  Sender: FDA-Public Use
  Company Number: GB-ASTRAZENECA-2012SE00356

PATIENT
  Age: 61 Year
  Sex: Female

DRUGS (4)
  1. CHIROCAINE [Suspect]
     Dosage: FIVE DF
  2. TRIAMCINOLONE ACETONIDE [Suspect]
     Route: 014
  3. LIDOCAINE [Suspect]
     Route: 040
     Dates: start: 20111214
  4. CHIROCAINE [Suspect]
     Dosage: 50MG/5ML, ONE DF
     Route: 040
     Dates: start: 20111214

REACTIONS (5)
  - LIP SWELLING [None]
  - DYSPNOEA [None]
  - HYPERSENSITIVITY [None]
  - ANAPHYLACTIC REACTION [None]
  - URTICARIA [None]
